FAERS Safety Report 25517727 (Version 2)
Quarter: 2025Q3

REPORT INFORMATION
  Report Type: Report from Study
  Country: US (occurrence: US)
  Receive Date: 20250704
  Receipt Date: 20250810
  Transmission Date: 20251020
  Serious: Yes (Other)
  Sender: ALEXION PHARMACEUTICALS
  Company Number: US-AstraZeneca-CH-00888352A

PATIENT
  Age: 63 Year
  Sex: Female
  Weight: 89.811 kg

DRUGS (19)
  1. TEZEPELUMAB [Suspect]
     Active Substance: TEZEPELUMAB
     Indication: Asthma
     Dosage: 210 MILLIGRAM, Q4W
     Dates: start: 20241122
  2. TEZEPELUMAB [Suspect]
     Active Substance: TEZEPELUMAB
  3. OMEPRAZOLE [Suspect]
     Active Substance: OMEPRAZOLE
     Dosage: 20 MILLIGRAM, QD
  4. ROSUVASTATIN [Suspect]
     Active Substance: ROSUVASTATIN
     Dosage: 20 MILLIGRAM, QD
  5. METOPROLOL SUCCINATE [Suspect]
     Active Substance: METOPROLOL SUCCINATE
     Dosage: 50 MILLIGRAM, QD
  6. TRELEGY ELLIPTA [Concomitant]
     Active Substance: FLUTICASONE FUROATE\UMECLIDINIUM BROMIDE\VILANTEROL TRIFENATATE
     Dosage: 1 INHALATION, QD
  7. COENZYME Q10 [Concomitant]
     Active Substance: DIETARY SUPPLEMENT\UBIDECARENONE
     Dosage: 100 MILLIGRAM, QD
  8. DOCUSATE CALCIUM [Concomitant]
     Active Substance: DOCUSATE CALCIUM
     Dosage: 240 MILLIGRAM, QD
  9. FERROUS SULFATE [Concomitant]
     Active Substance: FERROUS SULFATE
     Dosage: 325 MILLIGRAM, QD
  10. FAMOTIDINE [Concomitant]
     Active Substance: FAMOTIDINE
     Dosage: 20 MILLIGRAM, BID
  11. FUROSEMIDE [Concomitant]
     Active Substance: FUROSEMIDE
     Dosage: 20 MILLIGRAM, QD
  12. LEVOCETIRIZINE [Concomitant]
     Active Substance: LEVOCETIRIZINE
  13. LISINOPRIL [Concomitant]
     Active Substance: LISINOPRIL
     Dosage: 20 MILLIGRAM, BID
  14. POTASSIUM CHLORIDE [Concomitant]
     Active Substance: POTASSIUM CHLORIDE
     Dosage: 10 MEQ TABLET, EXTENDED RELEASE 1 TAB
  15. SINGULAIR [Concomitant]
     Active Substance: MONTELUKAST SODIUM
     Dosage: 10 MILLIGRAM, QD
  16. TOPIRAMATE [Concomitant]
     Active Substance: TOPIRAMATE
     Dosage: 50 MILLIGRAM, BID
  17. LEVALBUTEROL [Concomitant]
     Active Substance: LEVALBUTEROL
     Dosage: .63 MG/3 ML SOLUTION 3 ML BY NEBULIZER
  18. PREDNISONE [Concomitant]
     Active Substance: PREDNISONE
     Dosage: S MG/5 ML SOLUTIONS ML ORALLY
  19. BREZTRI [Concomitant]
     Active Substance: BUDESONIDE\FORMOTEROL\GLYCOPYRROLATE
     Dosage: 160 MOG-4.8 MCG-9 MCG/INH AEROSOL 2 INH

REACTIONS (19)
  - Respiratory failure [Unknown]
  - IgG deficiency [Unknown]
  - Chronic kidney disease [Unknown]
  - Weight increased [Unknown]
  - Nasal mucosal disorder [Unknown]
  - Nasal septum perforation [Unknown]
  - Tympanic membrane disorder [Unknown]
  - Asthma [Unknown]
  - Essential hypertension [Unknown]
  - Chronic sinusitis [Unknown]
  - Rhinitis allergic [Unknown]
  - Respiratory tract infection [Unknown]
  - Migraine [Unknown]
  - Pain [Unknown]
  - Product dose omission issue [Unknown]
  - Immune system disorder [Unknown]
  - White blood cell count increased [Unknown]
  - Neutrophil count increased [Unknown]
  - Drug ineffective [Unknown]
